FAERS Safety Report 20017825 (Version 2)
Quarter: 2022Q2

REPORT INFORMATION
  Report Type: Other
  Country: CA (occurrence: CA)
  Receive Date: 20211101
  Receipt Date: 20220425
  Transmission Date: 20220721
  Serious: No
  Sender: FDA-Public Use
  Company Number: CA-TOLMAR, INC.-21CA029578

PATIENT
  Age: 70 Year
  Sex: Male

DRUGS (2)
  1. ELIGARD [Suspect]
     Active Substance: LEUPROLIDE ACETATE
     Indication: Prostate cancer
     Dosage: 45 MILLIGRAM, Q 6 MONTH
     Route: 058
     Dates: start: 20210809
  2. ELIGARD [Suspect]
     Active Substance: LEUPROLIDE ACETATE
     Dosage: 45 MILLIGRAM, Q 6 MONTH
     Route: 058
     Dates: start: 20220124

REACTIONS (2)
  - Injection site pain [Recovered/Resolved]
  - Hot flush [Unknown]

NARRATIVE: CASE EVENT DATE: 20210809
